FAERS Safety Report 21456049 (Version 39)
Quarter: 2024Q1

REPORT INFORMATION
  Report Type: Spontaneous
  Country: CA (occurrence: CA)
  Receive Date: 20221014
  Receipt Date: 20240208
  Transmission Date: 20240410
  Serious: Yes (Hospitalization, Other)
  Sender: FDA-Public Use
  Company Number: CA-PFIZER INC-202201187698

PATIENT
  Age: 44 Year
  Sex: Male
  Weight: 104.9 kg

DRUGS (18)
  1. ABRILADA [Suspect]
     Active Substance: ADALIMUMAB-AFZB
     Indication: Hidradenitis
     Dosage: 1 DF, WEEK 0 160 MG, WEEK 2 80 MG AND THEN 40 MG EVERY OTHER WEEK
     Route: 058
     Dates: start: 20220920, end: 202209
  2. ABRILADA [Suspect]
     Active Substance: ADALIMUMAB-AFZB
     Indication: Crohn^s disease
     Dosage: 1 DF WEEK 0 160 MG, WEEK 2 80 MG AND THEN 40 MG EVERY OTHER WEEK - PREFILLED PEN
     Route: 058
     Dates: start: 20220920, end: 20221111
  3. ABRILADA [Suspect]
     Active Substance: ADALIMUMAB-AFZB
     Dosage: 80 MG, 1ST INJECTION TO RLQ AND 2ND INJECTION TO LLW (ABDOMEN) FOR A TOTAL OF 80MG
     Route: 058
     Dates: start: 20221014
  4. ABRILADA [Suspect]
     Active Substance: ADALIMUMAB-AFZB
     Dosage: 40 MG, EVERY OTHER WEEK
     Route: 058
     Dates: start: 20221028, end: 2022
  5. ABRILADA [Suspect]
     Active Substance: ADALIMUMAB-AFZB
     Dosage: 40 MG, EVERY OTHER WEEK
     Route: 058
     Dates: start: 20221111, end: 2022
  6. ABRILADA [Suspect]
     Active Substance: ADALIMUMAB-AFZB
     Dosage: 1 DF, REINDUCE, WEEK 0 160 MG, WEEK 2 80 MG AND THEN 40 MG EVERY OTHER WEEK - PREFILLED PEN
     Route: 058
     Dates: start: 20230315
  7. ABRILADA [Suspect]
     Active Substance: ADALIMUMAB-AFZB
     Dosage: 1 DF REINDUCE, WEEK 0 160 MG, WEEK 2 80 MG AND THEN 40 MG EVERY OTHER WEEK - PREFILLED PEN
     Route: 058
     Dates: start: 20230315, end: 20230509
  8. ABRILADA [Suspect]
     Active Substance: ADALIMUMAB-AFZB
     Dosage: 80 MG (WEEK 2 DOSE)
     Route: 058
     Dates: start: 20230328
  9. ABRILADA [Suspect]
     Active Substance: ADALIMUMAB-AFZB
     Dosage: 40MG AFTER 4 WEEKS
     Route: 058
     Dates: start: 20230425
  10. ABRILADA [Suspect]
     Active Substance: ADALIMUMAB-AFZB
     Dosage: 40 MG  2 WEEKS
     Route: 058
     Dates: start: 20230509, end: 20230509
  11. ABRILADA [Suspect]
     Active Substance: ADALIMUMAB-AFZB
     Dosage: 40 MG, (AFTER 8 WEEKS AND 3 DAYS) WEEKLY, PREFILLED PEN
     Route: 058
     Dates: start: 20230707
  12. ABRILADA [Suspect]
     Active Substance: ADALIMUMAB-AFZB
     Dosage: 40 MG, EVERY WEEK, PREFILLED PEN
     Route: 058
     Dates: start: 20230713
  13. ABRILADA [Suspect]
     Active Substance: ADALIMUMAB-AFZB
     Dosage: 40 MG, EVERY WEEK, PREFILLED PEN
     Route: 058
     Dates: start: 20230721
  14. ABRILADA [Suspect]
     Active Substance: ADALIMUMAB-AFZB
     Dosage: 40 MG, 6 DAYS
     Route: 058
     Dates: start: 20230727
  15. ABRILADA [Suspect]
     Active Substance: ADALIMUMAB-AFZB
     Dosage: 40MG AFTER 1 WEEKS
     Route: 058
     Dates: start: 20230803
  16. ABRILADA [Suspect]
     Active Substance: ADALIMUMAB-AFZB
     Dosage: 40 MG 1 WEEK
     Route: 058
     Dates: start: 20230810
  17. ABRILADA [Suspect]
     Active Substance: ADALIMUMAB-AFZB
     Dosage: 40 MG, (2 WEEKS AND 6 DAYS) WEEKLY
     Route: 058
     Dates: start: 20230830
  18. ABRILADA [Suspect]
     Active Substance: ADALIMUMAB-AFZB
     Dosage: 80 MG, WEEKLY, PREFILLED PEN
     Route: 058
     Dates: start: 20230906

REACTIONS (44)
  - Chest pain [Not Recovered/Not Resolved]
  - Thyroid disorder [Not Recovered/Not Resolved]
  - Renal disorder [Not Recovered/Not Resolved]
  - Infection [Not Recovered/Not Resolved]
  - Lower respiratory tract infection viral [Recovered/Resolved]
  - Lower respiratory tract infection [Recovered/Resolved]
  - Pericarditis [Not Recovered/Not Resolved]
  - Malaise [Not Recovered/Not Resolved]
  - Arrhythmia [Not Recovered/Not Resolved]
  - Pharyngitis [Recovering/Resolving]
  - Ear infection [Not Recovered/Not Resolved]
  - Pharyngeal abscess [Unknown]
  - Weight increased [Unknown]
  - Familial mediterranean fever [Not Recovered/Not Resolved]
  - Therapeutic product effect delayed [Unknown]
  - Therapeutic product effect incomplete [Unknown]
  - Drug ineffective [Unknown]
  - Fatigue [Recovered/Resolved]
  - Swelling [Recovering/Resolving]
  - Nasopharyngitis [Recovered/Resolved]
  - Condition aggravated [Not Recovered/Not Resolved]
  - Abdominal distension [Not Recovered/Not Resolved]
  - Night sweats [Unknown]
  - White blood cell count increased [Not Recovered/Not Resolved]
  - Dehydration [Not Recovered/Not Resolved]
  - Lip exfoliation [Not Recovered/Not Resolved]
  - Ventricular extrasystoles [Not Recovered/Not Resolved]
  - Gastrointestinal disorder [Not Recovered/Not Resolved]
  - Anal incontinence [Not Recovered/Not Resolved]
  - Hypertension [Not Recovered/Not Resolved]
  - COVID-19 [Not Recovered/Not Resolved]
  - Vomiting [Unknown]
  - Arthralgia [Unknown]
  - Gastroenteritis [Unknown]
  - Viral infection [Recovered/Resolved]
  - Ear disorder [Recovering/Resolving]
  - Swelling face [Not Recovered/Not Resolved]
  - Faecal calprotectin increased [Recovering/Resolving]
  - Skin fissures [Not Recovered/Not Resolved]
  - Stress [Unknown]
  - Off label use [Unknown]
  - Inappropriate schedule of product administration [Unknown]
  - Product dose omission issue [Unknown]
  - Off label use [Unknown]

NARRATIVE: CASE EVENT DATE: 20220101
